FAERS Safety Report 4317238-4 (Version None)
Quarter: 2004Q1

REPORT INFORMATION
  Report Type: 
  Country: None (occurrence: None)
  Receive Date: 20040312
  Receipt Date: 20031015
  Transmission Date: 20041129
  Serious: Yes (Hospitalization, Other)
  Sender: FDA-Public Use
  Company Number: KII-2003-0007821

PATIENT
  Age: 42 Year
  Sex: Male

DRUGS (4)
  1. OXYCONTIN [Suspect]
  2. ETHANOL (ETHANOL) [Suspect]
  3. FLUOXETINE [Suspect]
     Dosage: ORAL
     Route: 048
  4. BUPROPION (AMFEBUTAMONE) [Suspect]
     Dosage: ORAL
     Route: 048

REACTIONS (14)
  - AGITATION [None]
  - ANION GAP ABNORMAL [None]
  - BLOOD ALCOHOL INCREASED [None]
  - CONFUSIONAL STATE [None]
  - CONVULSION [None]
  - DEPRESSED LEVEL OF CONSCIOUSNESS [None]
  - DYSARTHRIA [None]
  - HYPERTENSION [None]
  - INTENTION TREMOR [None]
  - MULTIPLE DRUG OVERDOSE [None]
  - SEROTONIN SYNDROME [None]
  - TACHYCARDIA [None]
  - TREMOR [None]
  - VOMITING [None]
